FAERS Safety Report 6313329-7 (Version None)
Quarter: 2009Q3

REPORT INFORMATION
  Report Type: 
  Country: None (occurrence: None)
  Receive Date: 20090818
  Receipt Date: 20090807
  Transmission Date: 20100115
  Serious: Yes (Other)
  Sender: FDA-Public Use
  Company Number: B0584527A

PATIENT
  Sex: Female

DRUGS (16)
  1. LAMICTAL [Suspect]
     Indication: EPILEPSY
     Route: 048
     Dates: start: 20090211, end: 20090629
  2. PHENOBARBITAL TAB [Concomitant]
     Indication: EPILEPSY
     Dosage: 50MG PER DAY
     Route: 048
  3. EXCEGRAN [Concomitant]
     Indication: EPILEPSY
     Dosage: 130MG PER DAY
     Route: 048
  4. DANTRIUM [Concomitant]
     Indication: MUSCLE TIGHTNESS
     Dosage: 15MG PER DAY
     Route: 048
  5. DOPAR [Concomitant]
     Indication: MUSCLE TIGHTNESS
     Dosage: 100MG PER DAY
     Route: 048
     Dates: end: 20090519
  6. LIORESAL [Concomitant]
     Indication: MUSCLE TIGHTNESS
     Dosage: 45MG PER DAY
     Route: 048
  7. TIZANIDINE HCL [Concomitant]
     Indication: MUSCLE TIGHTNESS
     Dosage: 3MG PER DAY
     Route: 048
  8. BISOLVON [Concomitant]
     Dosage: 3MG PER DAY
     Route: 048
  9. CLEANAL [Concomitant]
     Indication: PRODUCTIVE COUGH
     Dosage: 150MG PER DAY
     Route: 048
     Dates: end: 20090708
  10. GASTER [Concomitant]
     Indication: GASTRITIS
     Dosage: 8MG PER DAY
  11. MUCODYNE [Concomitant]
     Indication: PRODUCTIVE COUGH
     Dosage: 399MG PER DAY
     Route: 048
  12. MUCOSAL [Concomitant]
     Indication: BRONCHITIS
     Dosage: 9MG PER DAY
     Route: 048
  13. MYONAL [Concomitant]
     Indication: MUSCLE TIGHTNESS
     Dosage: 51MG PER DAY
     Route: 048
     Dates: end: 20090709
  14. LAC B [Concomitant]
     Dosage: .9G PER DAY
     Route: 048
  15. LEXOTAN [Concomitant]
     Indication: MUSCLE TIGHTNESS
     Dosage: 1MG PER DAY
     Route: 048
  16. DEPAKENE [Concomitant]
     Indication: EPILEPSY
     Dosage: 400MG PER DAY
     Route: 048

REACTIONS (1)
  - FANCONI SYNDROME [None]
